FAERS Safety Report 6909309-0 (Version None)
Quarter: 2010Q3

REPORT INFORMATION
  Report Type: 
  Country: None (occurrence: None)
  Receive Date: 20100803
  Receipt Date: 20100720
  Transmission Date: 20110219
  Serious: Yes (Other)
  Sender: FDA-Public Use
  Company Number: 010526

PATIENT
  Age: 10 Year
  Sex: Female

DRUGS (6)
  1. BUSULFEX [Suspect]
     Indication: STEM CELL TRANSPLANT
     Dosage: 0.8 MG/KG Q6HR INTRAVENOUS
     Route: 042
  2. ANTITHYMOCYTE IMMUNOGLOBULIN (ANTITHYMOCYTE IMMUOGLOBULIN) [Concomitant]
  3. CYCLOPHOSPHAMIDE [Concomitant]
  4. CYCLOSPORINE [Concomitant]
  5. MYCOPHENOLATE MOFETIL [Concomitant]
  6. PHENYTOIN [Concomitant]

REACTIONS (4)
  - CONVULSION [None]
  - HAEMOLYTIC ANAEMIA [None]
  - HERPES ZOSTER [None]
  - OVARIAN FAILURE [None]
